FAERS Safety Report 8847965 (Version 3)
Quarter: 2012Q4

REPORT INFORMATION
  Report Type: Report from Study
  Country: DE (occurrence: DE)
  Receive Date: 20121018
  Receipt Date: 20121119
  Transmission Date: 20130627
  Serious: Yes (Hospitalization)
  Sender: FDA-Public Use
  Company Number: DE-ROCHE-1143852

PATIENT
  Age: 58 Year
  Sex: Male

DRUGS (5)
  1. BEVACIZUMAB [Suspect]
     Indication: COLON CANCER
     Dosage: Date of most recent dose prior to SAE: 10/Sep/2012, last dose administered 5 mg/kg
     Route: 065
     Dates: start: 20120813
  2. LEUCOVORIN [Suspect]
     Indication: COLON CANCER
     Dosage: Date of most recent dose prior to SAE: 10/Sep/2012, last dose administered 205 mg/m2
     Route: 065
     Dates: start: 20120813
  3. 5-FU [Suspect]
     Indication: COLON CANCER
     Dosage: Date of most recent dose prior to SAE: 10/Sep/2012, last dose administered 3200 mg/m2
     Route: 065
     Dates: start: 20120813
  4. IRINOTECAN [Suspect]
     Indication: COLON CANCER
     Dosage: Date of most recent dose prior to SAE: 10/Sep/2012, last dose administered 165 mg/m2
     Route: 065
     Dates: start: 20120813
  5. OXALIPLATIN [Suspect]
     Indication: COLON CANCER
     Route: 042
     Dates: start: 20120813

REACTIONS (3)
  - Hypotension [Recovered/Resolved]
  - Circulatory collapse [Recovered/Resolved]
  - Neutropenia [Recovered/Resolved]
